FAERS Safety Report 6699180-7 (Version None)
Quarter: 2010Q2

REPORT INFORMATION
  Report Type: 
  Country: None (occurrence: None)
  Receive Date: 20100427
  Receipt Date: 20100419
  Transmission Date: 20101027
  Serious: Yes (Hospitalization)
  Sender: FDA-Public Use
  Company Number: US-TEVA-231873USA

PATIENT
  Age: 67 Year
  Sex: Female

DRUGS (2)
  1. RAMIPRIL CAPSULES, 1.25MG, 2.5MG, 5 MG AND 10 MG [Suspect]
     Indication: HYPERTENSION
     Route: 048
  2. RAMIPRIL CAPSULES, 1.25MG, 2.5MG, 5 MG AND 10 MG [Concomitant]

REACTIONS (1)
  - PUSTULAR PSORIASIS [None]
